FAERS Safety Report 10691115 (Version 1)
Quarter: 2015Q1

REPORT INFORMATION
  Report Type: Spontaneous
  Country: ES (occurrence: None)
  Receive Date: 20150102
  Receipt Date: 20150102
  Transmission Date: 20150720
  Serious: Yes (Hospitalization)
  Sender: FDA-Public Use
  Company Number: ES-ZYDUS-006139

PATIENT
  Age: 48 Year
  Sex: Male

DRUGS (3)
  1. SODIUM VALPROATE (SODIUM VALPROATE) [Suspect]
     Active Substance: VALPROATE SODIUM
     Route: 048
     Dates: start: 2012
  2. RISPERIDONE (RISPERIDONE) [Suspect]
     Active Substance: RISPERIDONE
     Indication: SCHIZOPHRENIA, PARANOID TYPE
     Dates: start: 2012, end: 20120726
  3. HALOPERIDOL (HALOPERIDOL) (HALOPERIDOL) [Suspect]
     Active Substance: HALOPERIDOL
     Indication: SCHIZOPHRENIA, PARANOID TYPE
     Dates: start: 2012, end: 20120726

REACTIONS (3)
  - Hyponatraemia [None]
  - Gait disturbance [None]
  - Language disorder [None]

NARRATIVE: CASE EVENT DATE: 20120726
